FAERS Safety Report 12902001 (Version 1)
Quarter: 2016Q4

REPORT INFORMATION
  Report Type: Report from Study
  Country: BR (occurrence: BR)
  Receive Date: 20161102
  Receipt Date: 20161102
  Transmission Date: 20170207
  Serious: Yes (Other)
  Sender: FDA-Public Use
  Company Number: PHHY2016BR149600

PATIENT
  Sex: Male
  Weight: 69 kg

DRUGS (2)
  1. TEGRETOL CR [Suspect]
     Active Substance: CARBAMAZEPINE
     Dosage: 1 DF, BID (2 WEEKS AGO) (1 TABLET IN THE MORNING AND 1 TABLET AT NIGHT)
     Route: 065
  2. TEGRETOL CR [Suspect]
     Active Substance: CARBAMAZEPINE
     Indication: SEIZURE
     Dosage: 1 DF, BID (8 YEARS AGO) (1 TABLET IN MORNING AND 1 AT NIGHT)
     Route: 048

REACTIONS (5)
  - Malaise [Unknown]
  - Emotional distress [Unknown]
  - Emotional poverty [Unknown]
  - Memory impairment [Unknown]
  - Seizure [Unknown]
